FAERS Safety Report 12852588 (Version 1)
Quarter: 2016Q4

REPORT INFORMATION
  Report Type: Spontaneous
  Country: US (occurrence: US)
  Receive Date: 20161017
  Receipt Date: 20161017
  Transmission Date: 20170207
  Serious: No
  Sender: FDA-Public Use
  Company Number: US-ELI_LILLY_AND_COMPANY-US201610004274

PATIENT
  Age: 79 Year
  Sex: Female

DRUGS (1)
  1. FORTEO [Suspect]
     Active Substance: TERIPARATIDE
     Indication: OSTEOPOROSIS
     Dosage: UNK, QD
     Route: 065
     Dates: start: 20160906, end: 20161001

REACTIONS (4)
  - Abnormal faeces [Recovering/Resolving]
  - Abdominal pain upper [Recovering/Resolving]
  - Flatulence [Recovering/Resolving]
  - Anal incontinence [Recovering/Resolving]

NARRATIVE: CASE EVENT DATE: 20160906
